FAERS Safety Report 23359688 (Version 1)
Quarter: 2024Q1

REPORT INFORMATION
  Report Type: Report from Study
  Country: US (occurrence: US)
  Receive Date: 20240103
  Receipt Date: 20240103
  Transmission Date: 20240410
  Serious: Yes (Hospitalization, Other)
  Sender: FDA-Public Use
  Company Number: US-JAZZ PHARMACEUTICALS-2023-US-025539

PATIENT
  Sex: Male

DRUGS (3)
  1. EPIDIOLEX [Suspect]
     Active Substance: CANNABIDIOL
     Indication: Epilepsy
     Dosage: 0.7 MILLILITER, BID FOR 1 WEEK
     Route: 048
     Dates: start: 202312
  2. EPIDIOLEX [Suspect]
     Active Substance: CANNABIDIOL
     Dosage: 1.3 MILLILITER, BID FOR 1 WEEK
     Route: 048
  3. EPIDIOLEX [Suspect]
     Active Substance: CANNABIDIOL
     Dosage: 2 MILLILITER, BID THEREAFTER
     Route: 048

REACTIONS (2)
  - Seizure [Recovering/Resolving]
  - Off label use [Unknown]
